FAERS Safety Report 22003705 (Version 2)
Quarter: 2023Q2

REPORT INFORMATION
  Report Type: Spontaneous
  Country: FR (occurrence: FR)
  Receive Date: 20230217
  Receipt Date: 20230608
  Transmission Date: 20230722
  Serious: Yes (Hospitalization)
  Sender: FDA-Public Use
  Company Number: FR-SUN PHARMACEUTICAL INDUSTRIES LTD-2023RR-378484

PATIENT
  Age: 20 Year
  Sex: Male
  Weight: 76 kg

DRUGS (3)
  1. AZITHROMYCIN [Suspect]
     Active Substance: AZITHROMYCIN
     Indication: Odynophagia
     Dosage: 500 MILLIGRAM
     Route: 048
     Dates: start: 20221210, end: 20221212
  2. ACETAMINOPHEN\OPIUM [Suspect]
     Active Substance: ACETAMINOPHEN\OPIUM
     Indication: Headache
     Dosage: UNK
     Route: 048
     Dates: start: 20221213
  3. TIAPROFENIC ACID [Concomitant]
     Active Substance: TIAPROFENIC ACID
     Indication: Odynophagia
     Dosage: UNK
     Route: 048
     Dates: start: 20221210, end: 20221213

REACTIONS (1)
  - Pancreatitis [Recovered/Resolved]

NARRATIVE: CASE EVENT DATE: 20221213
